FAERS Safety Report 9465455 (Version 1)
Quarter: 2013Q3

REPORT INFORMATION
  Report Type: Other
  Country: US (occurrence: US)
  Receive Date: 20130820
  Receipt Date: 20130820
  Transmission Date: 20140515
  Serious: Yes (Other)
  Sender: FDA-Public Use
  Company Number: US-LUPIN PHARMACEUTICALS INC.-2013-01518

PATIENT
  Sex: Female
  Weight: 59.02 kg

DRUGS (8)
  1. QUETIAPINE [Suspect]
     Indication: PRODUCT USED FOR UNKNOWN INDICATION
     Route: 065
  2. LYRICA [Suspect]
     Indication: MUSCLE DISORDER
     Route: 065
     Dates: start: 2010, end: 2012
  3. PUREPAC [Suspect]
     Indication: ANXIETY
     Route: 065
  4. PUREPAC [Suspect]
     Indication: SLEEP DISORDER
  5. OMEPRAZOLE [Concomitant]
     Indication: PRODUCT USED FOR UNKNOWN INDICATION
     Route: 065
  6. CITALOPRAM [Concomitant]
     Indication: PRODUCT USED FOR UNKNOWN INDICATION
     Route: 065
  7. TRAZODONE [Concomitant]
     Indication: ANXIETY
     Route: 065
  8. TRAZODONE [Concomitant]
     Indication: SLEEP DISORDER

REACTIONS (5)
  - Breast cancer [Unknown]
  - Disease complication [Unknown]
  - Neuralgia [Unknown]
  - Depression [Unknown]
  - Drug ineffective [Unknown]
